FAERS Safety Report 8224446-9 (Version None)
Quarter: 2012Q1

REPORT INFORMATION
  Report Type: 
  Country: None (occurrence: None)
  Receive Date: 20120321
  Receipt Date: 20120316
  Transmission Date: 20120608
  Serious: Yes (Hospitalization)
  Sender: FDA-Public Use
  Company Number: JP-BAYER-2012-027228

PATIENT
  Age: 41 Year
  Sex: Male

DRUGS (1)
  1. BETASERON [Suspect]
     Indication: MULTIPLE SCLEROSIS
     Dosage: DAILY DOSE 8 MIU
     Route: 058

REACTIONS (9)
  - PLEURAL EFFUSION [None]
  - FACE OEDEMA [None]
  - ASCITES [None]
  - THROMBOTIC MICROANGIOPATHY [None]
  - ECZEMA [None]
  - MULTIPLE SCLEROSIS RELAPSE [None]
  - ASTHENIA [None]
  - EATING DISORDER SYMPTOM [None]
  - HYPERTENSION [None]
